FAERS Safety Report 10091006 (Version 20)
Quarter: 2014Q4

REPORT INFORMATION
  Report Type: Report from Study
  Country: US (occurrence: US)
  Receive Date: 20140421
  Receipt Date: 20141006
  Transmission Date: 20150528
  Serious: Yes (Hospitalization)
  Sender: FDA-Public Use
  Company Number: US-ACTELION-A-US2013-83271

PATIENT
  Age: 55 Year
  Sex: Female

DRUGS (6)
  1. VELETRI [Suspect]
     Active Substance: EPOPROSTENOL
     Dosage: 8 NG/KG, PER MIN
     Route: 042
     Dates: start: 20130502
  2. OPSUMIT [Suspect]
     Active Substance: MACITENTAN
     Indication: PULMONARY ARTERIAL HYPERTENSION
     Dosage: 10 MG, QD
     Route: 048
     Dates: start: 20140411
  3. VELETRI [Suspect]
     Active Substance: EPOPROSTENOL
     Dosage: 28 NG/KG/MIN
     Route: 041
     Dates: start: 20130502
  4. VELETRI [Suspect]
     Active Substance: EPOPROSTENOL
     Dosage: 19 NG/KG, PER MIN
     Route: 042
     Dates: start: 20130502
  5. REMODULIN [Concomitant]
     Active Substance: TREPROSTINIL
  6. VELETRI [Suspect]
     Active Substance: EPOPROSTENOL
     Indication: PULMONARY ARTERIAL HYPERTENSION
     Dosage: 32 NG/KG, PER MIN
     Route: 042
     Dates: start: 20130502

REACTIONS (33)
  - Visual impairment [Unknown]
  - Arthritis [Unknown]
  - Influenza like illness [Not Recovered/Not Resolved]
  - Headache [Unknown]
  - Pain in extremity [Not Recovered/Not Resolved]
  - Skin discolouration [Not Recovered/Not Resolved]
  - Vomiting [Unknown]
  - Rash pruritic [Unknown]
  - Rash generalised [Not Recovered/Not Resolved]
  - Vitreous floaters [Not Recovered/Not Resolved]
  - Oral candidiasis [Not Recovered/Not Resolved]
  - Arthralgia [Not Recovered/Not Resolved]
  - Pyrexia [Unknown]
  - Diarrhoea [Unknown]
  - Visual field defect [Not Recovered/Not Resolved]
  - Cyst [Unknown]
  - Dry skin [Not Recovered/Not Resolved]
  - Fatigue [Unknown]
  - Pain in jaw [Not Recovered/Not Resolved]
  - Nausea [Not Recovered/Not Resolved]
  - Condition aggravated [Unknown]
  - Myalgia [Unknown]
  - Abdominal distension [Unknown]
  - Dizziness [Not Recovered/Not Resolved]
  - Flushing [Not Recovered/Not Resolved]
  - Hypotension [Unknown]
  - Back pain [Unknown]
  - Pruritus [Not Recovered/Not Resolved]
  - Pain of skin [Unknown]
  - Erythema [Unknown]
  - Constipation [Unknown]
  - Pain [Unknown]
  - Chest pain [Unknown]
